FAERS Safety Report 6039424-8 (Version None)
Quarter: 2009Q1

REPORT INFORMATION
  Report Type: 
  Country: None (occurrence: None)
  Receive Date: 20090115
  Receipt Date: 20090108
  Transmission Date: 20090719
  Serious: Yes (Hospitalization)
  Sender: FDA-Public Use
  Company Number: US-AMGEN-QUU327412

PATIENT
  Sex: Female
  Weight: 100 kg

DRUGS (1)
  1. ENBREL [Suspect]
     Indication: PSORIASIS
     Route: 058
     Dates: start: 20080101, end: 20090108

REACTIONS (13)
  - ABNORMAL BEHAVIOUR [None]
  - ASTHENIA [None]
  - BIPOLAR DISORDER [None]
  - BRONCHITIS [None]
  - CEREBRAL THROMBOSIS [None]
  - CONVULSION [None]
  - COORDINATION ABNORMAL [None]
  - DIPLOPIA [None]
  - DRUG DEPENDENCE [None]
  - FATIGUE [None]
  - FEELING ABNORMAL [None]
  - MENTAL DISORDER [None]
  - STARING [None]
